FAERS Safety Report 4330378-9 (Version None)
Quarter: 2004Q2

REPORT INFORMATION
  Report Type: 
  Country: None (occurrence: None)
  Receive Date: 20040401
  Receipt Date: 20040322
  Transmission Date: 20050107
  Serious: Yes (Other)
  Sender: FDA-Public Use
  Company Number: HQ4374125SEP2002

PATIENT
  Age: 43 Year
  Sex: Female
  Weight: 61.29 kg

DRUGS (2)
  1. PREMARIN [Suspect]
     Indication: PREMENSTRUAL SYNDROME
     Dosage: ^3 WEEK OF PREMARIN AND ONE WEEK PROVERA^, ORAL
     Route: 048
     Dates: start: 19710101, end: 19790101
  2. PROVERA [Suspect]
     Dates: start: 19710101, end: 19790101

REACTIONS (11)
  - ASEPTIC NECROSIS BONE [None]
  - BREAST CANCER [None]
  - CONVULSION [None]
  - FIBROCYSTIC BREAST DISEASE [None]
  - KERATOCONJUNCTIVITIS SICCA [None]
  - MYOCARDIAL INFARCTION [None]
  - NECROSIS [None]
  - NEUROPATHY PERIPHERAL [None]
  - SINUS BRADYCARDIA [None]
  - SYSTEMIC LUPUS ERYTHEMATOSUS [None]
  - TRANSIENT ISCHAEMIC ATTACK [None]
